FAERS Safety Report 21327013 (Version 1)
Quarter: 2022Q3

REPORT INFORMATION
  Report Type: Spontaneous
  Country: GB (occurrence: GB)
  Receive Date: 20220913
  Receipt Date: 20220913
  Transmission Date: 20221027
  Serious: Yes (Other)
  Sender: FDA-Public Use
  Company Number: None

PATIENT
  Age: 49 Year
  Sex: Male
  Weight: 85 kg

DRUGS (3)
  1. ACETAMINOPHEN [Suspect]
     Active Substance: ACETAMINOPHEN
     Indication: Arthritis
     Route: 065
  2. NAPROXEN [Suspect]
     Active Substance: NAPROXEN
     Indication: Arthritis
     Route: 065
  3. COVID-19 VACCINE [Concomitant]
     Indication: COVID-19 immunisation
     Route: 065
     Dates: start: 20211116, end: 20211116

REACTIONS (1)
  - Gastrooesophageal reflux disease [Unknown]
